FAERS Safety Report 5090887-4 (Version None)
Quarter: 2006Q3

REPORT INFORMATION
  Report Type: 
  Country: None (occurrence: None)
  Receive Date: 20060823
  Receipt Date: 20060804
  Transmission Date: 20061208
  Serious: Yes (Death)
  Sender: FDA-Public Use
  Company Number: WAES 0608USA01489

PATIENT
  Age: 76 Year
  Sex: Male

DRUGS (1)
  1. CANCIDAS [Suspect]
     Indication: DRUG USE FOR UNKNOWN INDICATION
     Dosage: 50 MG/DAILY IV
     Route: 042
     Dates: start: 20060303, end: 20060317

REACTIONS (1)
  - DISEASE PROGRESSION [None]
